FAERS Safety Report 8384553 (Version 3)
Quarter: 2013Q3

REPORT INFORMATION
  Report Type: Spontaneous
  Country: US (occurrence: US)
  Receive Date: 20120202
  Receipt Date: 20130830
  Transmission Date: 20140515
  Serious: Yes (Hospitalization, Other)
  Sender: FDA-Public Use
  Company Number: US-ELI_LILLY_AND_COMPANY-US201201006933

PATIENT
  Age: 46 Year
  Sex: Female
  Weight: 78.1 kg

DRUGS (15)
  1. PROZAC [Suspect]
     Indication: DEPRESSION
     Dosage: 60 MG, QD
     Route: 048
     Dates: start: 2000
  2. VANCOMYCIN HYDROCHLORIDE [Suspect]
     Indication: BACTERIAL INFECTION
     Dosage: 1 G, UNK
     Route: 042
     Dates: start: 20111104, end: 20111107
  3. TRILAFON /00023401/ [Suspect]
     Indication: DEPRESSION
     Dosage: 8 MG, BID
     Route: 048
     Dates: start: 2000
  4. INDERAL [Concomitant]
     Dosage: 20 MG, TID
     Route: 048
     Dates: start: 1991
  5. KEPPRA [Concomitant]
     Dosage: 1000 MG, BID
     Route: 048
     Dates: start: 20110501
  6. MORPHINE [Concomitant]
     Dosage: 30 MG, BID
     Route: 048
     Dates: start: 2009
  7. FLEXERIL [Concomitant]
     Dosage: 20 MG, BID
     Route: 048
     Dates: start: 2005
  8. LAMICTAL [Concomitant]
     Dosage: 100 MG, BID
     Route: 048
     Dates: start: 20110611
  9. TRILAFON [Concomitant]
     Indication: DEPRESSION
     Dosage: 8 MG, BID
     Route: 048
     Dates: start: 2000
  10. WELLBUTRIN [Concomitant]
  11. CALCIUM + VITAMIN D [Concomitant]
  12. HYDROMORPHONE [Concomitant]
     Dosage: UNK
     Dates: start: 20111108, end: 20111109
  13. HEPARIN [Concomitant]
     Dosage: UNK
     Dates: start: 20111107
  14. VITAMINS NOS [Concomitant]
  15. ANTIHISTAMINES [Concomitant]
     Route: 042

REACTIONS (5)
  - Renal failure [Recovered/Resolved]
  - Anaphylactoid reaction [Recovered/Resolved]
  - Hyponatraemia [Recovered/Resolved]
  - Skin bacterial infection [Unknown]
  - Hypersensitivity [Unknown]
